FAERS Safety Report 9001002 (Version 1)
Quarter: 2012Q4

REPORT INFORMATION
  Report Type: Spontaneous
  Country: IT (occurrence: None)
  Receive Date: 20121226
  Receipt Date: 20121226
  Transmission Date: 20130627
  Serious: Yes (Hospitalization)
  Sender: FDA-Public Use
  Company Number: AG-2012-2023

PATIENT
  Age: 61 Year
  Sex: Male
  Weight: 114 kg

DRUGS (10)
  1. CHLORAMBUCIL (CHLORAMBUCIL) (UNKNOWN) [Suspect]
     Indication: CHRONIC LYMPHOCYTIC LEUKAEMIA
     Route: 048
     Dates: start: 20101102
  2. OBINUTUZUMAB (MONOCLONAL ANTIBODIES) (UNKNOWN) [Suspect]
     Indication: CHRONIC LYMPHOCYTIC LEUKAEMIA
     Dosage: 1 in 1 week
     Route: 042
     Dates: start: 20101102
  3. ALLOPURINOL (ALLOPURINOL) [Concomitant]
  4. LANSOX (LANSOPRAZOLE) [Concomitant]
  5. PREDNISONE (PREDNISONE) [Concomitant]
  6. DIOSMIN (DIOSMIN) [Concomitant]
  7. BLOPRESID (CANDESARTAN) [Concomitant]
  8. BIOFLAVONOIDS (BIOFLAVONOIDS) [Concomitant]
  9. HESPERIDIN (OTHER LIPID MODIFYING AGENTS) [Concomitant]
  10. HYDROCHLOROTHIAZIDE (HYDROCHLOROTHIAZIDE) [Concomitant]

REACTIONS (4)
  - Tumour lysis syndrome [None]
  - Infusion related reaction [None]
  - Pyrexia [None]
  - Renal failure [None]
